FAERS Safety Report 8131127-9 (Version None)
Quarter: 2012Q1

REPORT INFORMATION
  Report Type: 
  Country: None (occurrence: None)
  Receive Date: 20120213
  Receipt Date: 20120201
  Transmission Date: 20120608
  Serious: No
  Sender: FDA-Public Use
  Company Number: US-JNJFOC-20120202036

PATIENT
  Sex: Female

DRUGS (6)
  1. ROPINIROLE [Concomitant]
     Indication: RESTLESS LEGS SYNDROME
     Route: 048
     Dates: start: 20070101
  2. GABAPENTIN [Concomitant]
     Indication: NEURALGIA
     Route: 048
     Dates: start: 20040101
  3. HYDROCODONE [Concomitant]
     Indication: PAIN
     Dosage: 10/325/ 6 DAILY
     Route: 048
     Dates: start: 20040101
  4. TRAZODONE HCL [Concomitant]
     Indication: SLEEP DISORDER
     Route: 048
     Dates: start: 20070101
  5. XANAX [Concomitant]
     Indication: ANXIETY
     Route: 048
     Dates: start: 20000101
  6. FENTANYL-100 [Suspect]
     Indication: PAIN
     Route: 062
     Dates: start: 20120101

REACTIONS (2)
  - PRODUCT QUALITY ISSUE [None]
  - WRONG TECHNIQUE IN DRUG USAGE PROCESS [None]
